FAERS Safety Report 10310002 (Version 1)
Quarter: 2014Q3

REPORT INFORMATION
  Report Type: Spontaneous
  Country: US (occurrence: None)
  Receive Date: 20140715
  Receipt Date: 20140715
  Transmission Date: 20150326
  Serious: No
  Sender: FDA-Public Use
  Company Number: None

PATIENT
  Age: 46 Year
  Sex: Female
  Weight: 55.79 kg

DRUGS (1)
  1. LEVOTHYROXIN [Suspect]
     Active Substance: LEVOTHYROXINE
     Indication: HYPOTHYROIDISM
     Dosage: /DAY  ONCE DAILY TAKEN BY MOUTH
     Route: 048
     Dates: start: 20140617, end: 20140711

REACTIONS (4)
  - Pruritus [None]
  - Urticaria [None]
  - Product quality issue [None]
  - Product solubility abnormal [None]

NARRATIVE: CASE EVENT DATE: 20140610
